FAERS Safety Report 16646925 (Version 2)
Quarter: 2019Q3

REPORT INFORMATION
  Report Type: Spontaneous
  Country: US (occurrence: US)
  Receive Date: 20190730
  Receipt Date: 20190822
  Transmission Date: 20191004
  Serious: Yes (Hospitalization, Other)
  Sender: FDA-Public Use
  Company Number: US-ELI_LILLY_AND_COMPANY-US201907014514

PATIENT
  Sex: Male

DRUGS (1)
  1. STRATTERA [Suspect]
     Active Substance: ATOMOXETINE HYDROCHLORIDE
     Indication: PRODUCT USED FOR UNKNOWN INDICATION
     Dosage: UNK UNK, UNKNOWN
     Route: 065
     Dates: start: 2004, end: 2009

REACTIONS (8)
  - Dementia [Unknown]
  - Emotional distress [Unknown]
  - Decreased appetite [Unknown]
  - Gait disturbance [Unknown]
  - Starvation [Unknown]
  - Renal impairment [Unknown]
  - Developmental delay [Unknown]
  - Memory impairment [Unknown]
